FAERS Safety Report 4376621-1 (Version None)
Quarter: 2004Q2

REPORT INFORMATION
  Report Type: 
  Country: None (occurrence: None)
  Receive Date: 20040608
  Receipt Date: 20040524
  Transmission Date: 20050107
  Serious: Yes (Hospitalization)
  Sender: FDA-Public Use
  Company Number: 195581

PATIENT
  Age: 48 Year
  Sex: Female
  Weight: 72.5755 kg

DRUGS (5)
  1. AVONEX [Suspect]
     Indication: MULTIPLE SCLEROSIS
     Dosage: 30 MCG QW IM
     Route: 030
     Dates: start: 19991001, end: 20031101
  2. AVONEX [Suspect]
     Indication: MULTIPLE SCLEROSIS
     Dosage: 30 MCG QW IM
     Route: 030
     Dates: start: 20031101
  3. IV STEROIDS [Concomitant]
  4. ZANAFLEX [Concomitant]
  5. INDERAL [Concomitant]

REACTIONS (5)
  - DYSPNOEA [None]
  - GASTRIC BYPASS [None]
  - OVERWEIGHT [None]
  - PALPITATIONS [None]
  - STRESS SYMPTOMS [None]
